FAERS Safety Report 6070297-3 (Version None)
Quarter: 2009Q1

REPORT INFORMATION
  Report Type: 
  Country: None (occurrence: None)
  Receive Date: 20090209
  Receipt Date: 20090116
  Transmission Date: 20090719
  Serious: Yes (Hospitalization)
  Sender: FDA-Public Use
  Company Number: US-PFIZER INC-2006076551

PATIENT
  Sex: Female
  Weight: 92.7 kg

DRUGS (19)
  1. SILDENAFIL CITRATE [Suspect]
     Indication: PULMONARY HYPERTENSION
     Route: 048
     Dates: start: 20041104
  2. WARFARIN SODIUM [Concomitant]
     Dosage: QD
     Route: 048
     Dates: start: 20040714
  3. PREMARIN [Concomitant]
     Dosage: QD
     Route: 048
     Dates: start: 19940101
  4. SPIRONOLACTONE [Concomitant]
     Dosage: QD
     Route: 048
     Dates: start: 20020101
  5. BUMETANIDE [Concomitant]
     Dosage: QD
     Route: 048
     Dates: start: 20020101
  6. CHLORDIAZEPOXIDE HCL [Concomitant]
     Indication: INSOMNIA
     Dosage: BID
     Route: 048
     Dates: start: 19840101
  7. IPRATROPIUM BROMIDE [Concomitant]
     Dosage: 2 PUFFS,QD
     Route: 055
     Dates: start: 19960101
  8. FLUTICASONE PROPIONATE [Concomitant]
     Indication: ILL-DEFINED DISORDER
     Dosage: 2 PUFFS,QD
     Route: 055
     Dates: start: 20010101
  9. CALCIUM WITH VITAMIN D [Concomitant]
     Dosage: QD
     Route: 048
     Dates: start: 19890101
  10. CHONDROITIN/GLUCOSAMINE [Concomitant]
     Indication: OSTEOARTHRITIS
     Route: 048
     Dates: start: 20010101
  11. CENTRUM SILVER [Concomitant]
     Dosage: 1 TABLET,QD
     Route: 048
     Dates: start: 19840101
  12. ACETAMINOPHEN [Concomitant]
     Dosage: PRN
     Route: 048
     Dates: start: 19940101
  13. DIPHENHYDRAMINE HYDROCHLORIDE [Concomitant]
     Dosage: PRN
     Route: 048
     Dates: start: 20040908
  14. HYDROCORTISONE [Concomitant]
     Dosage: PRN
     Route: 061
     Dates: start: 20040908
  15. LOPERAMIDE HCL [Concomitant]
     Indication: DIARRHOEA
     Dosage: PRN
     Route: 048
     Dates: start: 20040714
  16. GABAPENTIN [Concomitant]
     Dosage: TID
     Route: 048
     Dates: start: 20021101
  17. VITAMIN A [Concomitant]
     Route: 061
     Dates: start: 20041104
  18. TRAMADOL HYDROCHLORIDE [Concomitant]
     Dosage: TID
     Route: 048
     Dates: start: 20060330
  19. EPOPROSTENOL [Concomitant]
     Route: 042
     Dates: start: 20030910

REACTIONS (1)
  - SINUS TACHYCARDIA [None]
